FAERS Safety Report 9322407 (Version 2)
Quarter: 2013Q4

REPORT INFORMATION
  Report Type: Spontaneous
  Country: CA (occurrence: CA)
  Receive Date: 20130531
  Receipt Date: 20131115
  Transmission Date: 20140711
  Serious: Yes (Life-Threatening, Other)
  Sender: FDA-Public Use
  Company Number: CHPA2013CA009202

PATIENT
  Age: 80 Year
  Sex: Male

DRUGS (8)
  1. BUCKLEY^S UNKNOWN [Suspect]
     Indication: INCREASED UPPER AIRWAY SECRETION
     Dosage: UNK UNK, QD
     Route: 048
  2. BUCKLEY^S UNKNOWN [Suspect]
     Indication: CARDIAC DISORDER
  3. BUCKLEY^S UNKNOWN [Suspect]
     Indication: PROPHYLAXIS
  4. BUCKLEY^S UNKNOWN [Suspect]
     Indication: OFF LABEL USE
  5. BUCKLEY^S MUCOUS + PHLEGM [Suspect]
     Indication: INCREASED UPPER AIRWAY SECRETION
  6. BUCKLEY^S MUCOUS + PHLEGM [Suspect]
     Indication: CARDIAC DISORDER
  7. BUCKLEY^S MUCOUS + PHLEGM [Suspect]
     Indication: PROPHYLAXIS
  8. BUCKLEY^S MUCOUS + PHLEGM [Suspect]
     Indication: OFF LABEL USE

REACTIONS (7)
  - Choking [Recovered/Resolved]
  - Cardiac disorder [Recovered/Resolved]
  - Eating disorder [Not Recovered/Not Resolved]
  - Asthenia [Not Recovered/Not Resolved]
  - Therapeutic response unexpected [Unknown]
  - Off label use [Unknown]
  - Incorrect drug administration duration [Unknown]
